FAERS Safety Report 17757794 (Version 1)
Quarter: 2020Q2

REPORT INFORMATION
  Report Type: Spontaneous
  Country: IE (occurrence: IE)
  Receive Date: 20200507
  Receipt Date: 20200507
  Transmission Date: 20200714
  Serious: Yes (Other)
  Sender: FDA-Public Use
  Company Number: IE-ASTRAZENECA-2020SE57443

PATIENT
  Age: 67 Year
  Sex: Female

DRUGS (14)
  1. BUFOMIX EASYHALER [Concomitant]
     Active Substance: BUDESONIDE\FORMOTEROL FUMARATE
     Dosage: 160 MICROGRAMS PER INHALATION
  2. CETIRIZINE [Concomitant]
     Active Substance: CETIRIZINE HYDROCHLORIDE
     Dosage: GENERIC
  3. METFORMIN [Concomitant]
     Active Substance: METFORMIN HYDROCHLORIDE
  4. DYMISTA [Concomitant]
     Active Substance: AZELASTINE HYDROCHLORIDE\FLUTICASONE PROPIONATE
     Dosage: 137MCG/50MCG PER ACTUATION
  5. VENTOLIN [Concomitant]
     Active Substance: ALBUTEROL SULFATE
     Dosage: 100 MICROGRAMS PER INHALATION
  6. ALVESCO [Concomitant]
     Active Substance: CICLESONIDE
     Route: 065
  7. FASENRA [Suspect]
     Active Substance: BENRALIZUMAB
     Indication: ASTHMA
     Route: 058
     Dates: start: 20200326
  8. CALCICHEW [Concomitant]
     Active Substance: CALCIUM CARBONATE
     Route: 048
  9. PANTOPRAZOLE [Concomitant]
     Active Substance: PANTOPRAZOLE
     Dosage: GENERIC
  10. PREDNISOLONE. [Concomitant]
     Active Substance: PREDNISOLONE
     Dosage: TAPERING DOSE 10/15 MG ALT DAYS
  11. PERINDOPRIL [Concomitant]
     Active Substance: PERINDOPRIL
     Dosage: GENERIC
  12. PREDNISOLONE. [Concomitant]
     Active Substance: PREDNISOLONE
     Dosage: 10.0MG UNKNOWN
  13. IPRAMOL [Concomitant]
     Active Substance: ALBUTEROL SULFATE\IPRATROPIUM BROMIDE
     Dosage: 0.5MG/2.5MG PER 2.5ML
  14. SOLPADEINE [Concomitant]
     Dosage: PARACETAMOL 500MG, CAFFEINE 30 MILLIGRAMS, CODEINE PHOSPHATE HEMIHYDRATE 8 MILLIGRAMS

REACTIONS (10)
  - Palpitations [Recovered/Resolved]
  - Musculoskeletal stiffness [Recovered/Resolved]
  - Vision blurred [Recovered/Resolved]
  - Headache [Recovered/Resolved]
  - Sinusitis [Recovered/Resolved]
  - Chest discomfort [Recovered/Resolved]
  - Peripheral swelling [Recovered/Resolved]
  - Lower respiratory tract infection [Recovered/Resolved]
  - Condition aggravated [Recovered/Resolved]
  - Musculoskeletal discomfort [Recovered/Resolved]

NARRATIVE: CASE EVENT DATE: 20200328
